FAERS Safety Report 6251857-3 (Version None)
Quarter: 2009Q2

REPORT INFORMATION
  Report Type: 
  Country: None (occurrence: None)
  Receive Date: 20090630
  Receipt Date: 20090622
  Transmission Date: 20091009
  Serious: Yes (Death, Hospitalization)
  Sender: FDA-Public Use
  Company Number: SE-PFIZER INC-2009229977

PATIENT
  Age: 40 Year

DRUGS (11)
  1. XANOR DEPOT [Suspect]
  2. PAROXETINE [Suspect]
  3. ABILIFY [Suspect]
     Indication: PSYCHOTIC DISORDER
     Dosage: 5 MG, 1X/DAY
     Route: 048
     Dates: start: 20061127
  4. PROPAVAN [Suspect]
  5. NOZINAN [Suspect]
  6. STESOLID [Suspect]
  7. IKTORIVIL [Suspect]
  8. CISORDINOL-ACUTARD [Suspect]
  9. IMOVANE [Suspect]
  10. ZYPREXA [Suspect]
  11. HALDOL [Suspect]

REACTIONS (3)
  - DEATH [None]
  - DELUSIONAL DISORDER, PERSECUTORY TYPE [None]
  - SEXUAL DYSFUNCTION [None]
